FAERS Safety Report 6653869-4 (Version None)
Quarter: 2010Q1

REPORT INFORMATION
  Report Type: 
  Country: None (occurrence: None)
  Receive Date: 20100326
  Receipt Date: 20100323
  Transmission Date: 20100710
  Serious: Yes (Death, Other)
  Sender: FDA-Public Use
  Company Number: US-CEPHALON-2010001708

PATIENT
  Age: 59 Year
  Sex: Male

DRUGS (1)
  1. TREANDA [Suspect]

REACTIONS (2)
  - DEATH [None]
  - PANCYTOPENIA [None]
